FAERS Safety Report 16978300 (Version 1)
Quarter: 2019Q4

REPORT INFORMATION
  Report Type: Spontaneous
  Country: US (occurrence: US)
  Receive Date: 20190914
  Receipt Date: 20190914
  Transmission Date: 20200122
  Serious: No
  Sender: FDA-Public Use
  Company Number: None

PATIENT
  Age: 72 Year
  Sex: Female
  Weight: 54.6 kg

DRUGS (2)
  1. DOXIL [Suspect]
     Active Substance: DOXORUBICIN HYDROCHLORIDE
     Dates: end: 20190803
  2. BEVACIZUMAB (RHUMAB VEGF) [Suspect]
     Active Substance: BEVACIZUMAB
     Dates: end: 20190802

REACTIONS (6)
  - Spinal deformity [None]
  - Neuropathy peripheral [None]
  - Balance disorder [None]
  - Therapy cessation [None]
  - Skin ulcer [None]
  - Fall [None]

NARRATIVE: CASE EVENT DATE: 20190823
